FAERS Safety Report 21327325 (Version 2)
Quarter: 2024Q4

REPORT INFORMATION
  Report Type: Spontaneous
  Country: US (occurrence: US)
  Receive Date: 20220913
  Receipt Date: 20241014
  Transmission Date: 20250115
  Serious: Yes (Hospitalization)
  Sender: BIOCODEX
  Company Number: US-BIOCODEX2-201900831

PATIENT
  Age: 5 Year
  Sex: Female
  Weight: 17.2 kg

DRUGS (15)
  1. DIACOMIT [Suspect]
     Active Substance: STIRIPENTOL
     Indication: Severe myoclonic epilepsy of infancy
     Dosage: 500 MG IN THE AM, 250 MIDDAY, 500 MG IN THE PM
     Route: 048
     Dates: start: 20190619
  2. DIACOMIT [Suspect]
     Active Substance: STIRIPENTOL
     Indication: Severe myoclonic epilepsy of infancy
     Dosage: 250 MG THREE TIMES DAILY
     Route: 065
  3. DIACOMIT [Suspect]
     Active Substance: STIRIPENTOL
     Indication: Severe myoclonic epilepsy of infancy
     Dosage: 250 MG TWO TIMES DAILY
     Route: 065
  4. DIACOMIT [Suspect]
     Active Substance: STIRIPENTOL
     Indication: Severe myoclonic epilepsy of infancy
     Dosage: 250 MG THREE TIMES DAILY
     Route: 065
  5. DIACOMIT [Suspect]
     Active Substance: STIRIPENTOL
     Indication: Severe myoclonic epilepsy of infancy
     Dosage: 1 CAPSULE (250 MG TOTAL) BY MOUTH 3 TIMES A DAY
     Route: 048
  6. DIACOMIT [Suspect]
     Active Substance: STIRIPENTOL
     Indication: Severe myoclonic epilepsy of infancy
     Dosage: 250MG THREE TIMES DAILY
     Route: 048
  7. ONFI [Concomitant]
     Active Substance: CLOBAZAM
     Indication: Severe myoclonic epilepsy of infancy
     Route: 065
  8. EPIDIOLEX [Concomitant]
     Active Substance: CANNABIDIOL
     Indication: Product used for unknown indication
     Route: 065
  9. FELBATOL [Concomitant]
     Active Substance: FELBAMATE
     Indication: Product used for unknown indication
     Route: 065
  10. CLORAZEPATE DIPOTASSIUM [Concomitant]
     Active Substance: CLORAZEPATE DIPOTASSIUM
     Indication: Product used for unknown indication
     Route: 065
  11. XCOPRI [Concomitant]
     Active Substance: CENOBAMATE
     Indication: Product used for unknown indication
     Route: 065
  12. MIDAZOLAM [Concomitant]
     Active Substance: MIDAZOLAM
     Indication: Product used for unknown indication
     Route: 065
  13. FINTEPLA [Concomitant]
     Active Substance: FENFLURAMINE
     Indication: Product used for unknown indication
     Route: 065
  14. PHENOBARBITAL [Concomitant]
     Active Substance: PHENOBARBITAL
     Indication: Product used for unknown indication
     Route: 065
  15. ETHOSUXIMIDE [Concomitant]
     Active Substance: ETHOSUXIMIDE
     Indication: Product used for unknown indication
     Route: 065

REACTIONS (5)
  - Dehydration [Unknown]
  - Abdominal pain upper [Unknown]
  - Ear infection [Unknown]
  - Product use in unapproved indication [Unknown]
  - Drug ineffective [Unknown]
